FAERS Safety Report 6213886-5 (Version None)
Quarter: 2009Q2

REPORT INFORMATION
  Report Type: 
  Country: None (occurrence: None)
  Receive Date: 20090602
  Receipt Date: 20090602
  Transmission Date: 20091009
  Serious: No
  Sender: FDA-Public Use
  Company Number: None

PATIENT
  Age: 73 Year
  Sex: Female
  Weight: 54.4316 kg

DRUGS (8)
  1. TOPAMAX [Suspect]
     Indication: MIGRAINE
     Dosage: 50MG 1T QAM AND 2T QPM PO
     Route: 048
  2. AMITRIPTLINE HYDROCHLORIDE TAB [Concomitant]
  3. ATENOLOL [Concomitant]
  4. IMITREX [Concomitant]
  5. PREMARIN [Concomitant]
  6. ZETIA [Concomitant]
  7. OXYTROL [Concomitant]
  8. LEVOXYL [Concomitant]

REACTIONS (1)
  - SOMNAMBULISM [None]
